FAERS Safety Report 21631276 (Version 2)
Quarter: 2022Q4

REPORT INFORMATION
  Report Type: Spontaneous
  Country: US (occurrence: US)
  Receive Date: 20221123
  Receipt Date: 20221208
  Transmission Date: 20230113
  Serious: No
  Sender: FDA-Public Use
  Company Number: US-BIOGEN-2022BI01165401

PATIENT
  Age: 52 Year
  Sex: Male

DRUGS (6)
  1. TECFIDERA [Suspect]
     Active Substance: DIMETHYL FUMARATE
     Indication: Multiple sclerosis
     Route: 050
     Dates: end: 20220926
  2. TECFIDERA [Suspect]
     Active Substance: DIMETHYL FUMARATE
     Route: 050
  3. FOLIC ACID [Concomitant]
     Active Substance: FOLIC ACID
     Route: 050
  4. POTASSIUM [Concomitant]
     Active Substance: POTASSIUM
     Route: 050
  5. IODINE [Concomitant]
     Active Substance: IODINE
     Route: 050
  6. MAGNESIUM SULFATE [Concomitant]
     Active Substance: MAGNESIUM SULFATE
     Route: 050

REACTIONS (5)
  - Carbon dioxide decreased [Unknown]
  - Red cell distribution width increased [Recovered/Resolved]
  - Blood chloride increased [Recovered/Resolved]
  - Lymphocyte count decreased [Not Recovered/Not Resolved]
  - Lymphocyte percentage decreased [Not Recovered/Not Resolved]

NARRATIVE: CASE EVENT DATE: 20210601
